FAERS Safety Report 9475492 (Version 3)
Quarter: 2013Q3

REPORT INFORMATION
  Report Type: Report from Study
  Country: CA (occurrence: CA)
  Receive Date: 20130826
  Receipt Date: 20130902
  Transmission Date: 20140515
  Serious: Yes (Other)
  Sender: FDA-Public Use
  Company Number: CA-ROCHE-1142499

PATIENT
  Age: 53 Year
  Sex: Female
  Weight: 78 kg

DRUGS (10)
  1. ACTEMRA [Suspect]
     Indication: RHEUMATOID ARTHRITIS
     Route: 042
     Dates: start: 20101104
  2. ACTEMRA [Suspect]
     Route: 042
     Dates: start: 20111215
  3. ACTEMRA [Suspect]
     Route: 042
     Dates: start: 20120221
  4. ACTEMRA [Suspect]
     Route: 042
     Dates: start: 20130124
  5. ACTEMRA [Suspect]
     Route: 065
     Dates: start: 20130620
  6. ACTEMRA [Suspect]
     Route: 042
     Dates: start: 20120118
  7. ELTROXIN [Concomitant]
     Route: 065
  8. NOVO-ATENOL [Concomitant]
     Indication: PALPITATIONS
     Route: 048
  9. NOVO-ATENOL [Concomitant]
     Indication: HYPERTENSION
  10. METHOTREXATE [Concomitant]

REACTIONS (4)
  - Heart rate decreased [Unknown]
  - Hypotension [Unknown]
  - Underdose [Unknown]
  - Weight decreased [Not Recovered/Not Resolved]
